FAERS Safety Report 20783165 (Version 4)
Quarter: 2022Q2

REPORT INFORMATION
  Report Type: Report from Study
  Country: US (occurrence: US)
  Receive Date: 20220504
  Receipt Date: 20220513
  Transmission Date: 20220721
  Serious: No
  Sender: FDA-Public Use
  Company Number: US-NOVARTISTESTPH-NVSC2022US101964

PATIENT
  Sex: Female
  Weight: 63.492 kg

DRUGS (4)
  1. TREPROSTINIL [Suspect]
     Active Substance: TREPROSTINIL
     Indication: Pulmonary arterial hypertension
     Dosage: 73.5 NG/KG/MIN, CONT
     Route: 058
     Dates: start: 20210910
  2. TREPROSTINIL [Suspect]
     Active Substance: TREPROSTINIL
     Dosage: 73.5 NG/KG/MIN, CONT
     Route: 058
  3. TADALAFIL [Concomitant]
     Active Substance: TADALAFIL
     Indication: Product used for unknown indication
     Route: 065
  4. AMBRISENTAN [Concomitant]
     Active Substance: AMBRISENTAN
     Indication: Product used for unknown indication
     Route: 065

REACTIONS (2)
  - Palpitations [Unknown]
  - Heart rate increased [Unknown]
